FAERS Safety Report 4549501-6 (Version None)
Quarter: 2005Q1

REPORT INFORMATION
  Report Type: 
  Country: None (occurrence: None)
  Receive Date: 20050110
  Receipt Date: 20050110
  Transmission Date: 20050727
  Serious: No
  Sender: FDA-Public Use
  Company Number: None

PATIENT
  Age: 68 Year
  Sex: Female

DRUGS (1)
  1. DURAGESIC [Suspect]
     Dates: start: 20041210, end: 20041231

REACTIONS (3)
  - NIGHTMARE [None]
  - TINNITUS [None]
  - VISUAL DISTURBANCE [None]
